FAERS Safety Report 8121059-4 (Version None)
Quarter: 2012Q1

REPORT INFORMATION
  Report Type: 
  Country: None (occurrence: None)
  Receive Date: 20120208
  Receipt Date: 20120126
  Transmission Date: 20120608
  Serious: Yes (Other)
  Sender: FDA-Public Use
  Company Number: US-UCBSA-023024

PATIENT
  Age: 65 Year
  Sex: Male
  Weight: 83.9 kg

DRUGS (13)
  1. LOPRESSOR [Concomitant]
     Route: 048
     Dates: start: 20120112, end: 20120113
  2. PAXIL [Concomitant]
     Indication: ANXIETY
     Dosage: FROM 5 YEARS
     Route: 048
  3. CIMZIA [Suspect]
     Route: 058
     Dates: start: 20090701
  4. APRISO [Concomitant]
     Indication: COLITIS ULCERATIVE
     Dosage: SINCE ATLEAST 4 YEARS
     Route: 048
  5. CIMZIA [Suspect]
     Indication: COLITIS ULCERATIVE
     Route: 058
     Dates: start: 20090713, end: 20090701
  6. BENICAR [Concomitant]
     Indication: BLOOD PRESSURE
     Dosage: DOSE PER INTAKE: 40/25 MG, TOTAL DAILY INTAKE: 40/25 MG:SINCE 5 YEARS
     Route: 048
  7. BYSTOLIC [Concomitant]
     Indication: BLOOD PRESSURE INCREASED
     Route: 048
     Dates: start: 20111201
  8. LOPRESSOR [Concomitant]
     Indication: BLOOD PRESSURE
     Dosage: THREE TIMES WITH MEALS
     Route: 048
     Dates: start: 20120113
  9. LOPRESSOR [Concomitant]
     Route: 048
     Dates: start: 20120111, end: 20120112
  10. HYDROCODONE BITARTRATE [Concomitant]
     Indication: PAIN
     Dosage: DOSE PER INTAKE: 5/325 MG, FREQUENCY: THREE PNR, TOTAL DAILY DOSE: VARIABLE
     Route: 048
  11. MAXALT [Concomitant]
     Indication: HEADACHE
     Dosage: DOSE PER INTAKE: 1 TAB, FREQUENCY: UPTO TWO TABLETS A DAY, VARIABLE PNR
     Route: 048
     Dates: start: 20120101
  12. VYTORIN [Concomitant]
     Indication: BLOOD CHOLESTEROL INCREASED
     Dosage: DOSE PER INTAKE: 10/40 MG, FREQUENCY: 1 TIME PER DAY, TOTAL DAILY DOSE: 10/40 MG
     Route: 048
  13. ONCOVEX [Concomitant]
     Indication: DYSPLASTIC NAEVUS SYNDROME
     Dates: start: 20110301

REACTIONS (6)
  - BLOOD UREA ABNORMAL [None]
  - BLOOD CREATININE ABNORMAL [None]
  - HEADACHE [None]
  - BLOOD PRESSURE INCREASED [None]
  - METASTATIC MALIGNANT MELANOMA [None]
  - BLOOD GLUCOSE INCREASED [None]
